FAERS Safety Report 16172070 (Version 3)
Quarter: 2019Q2

REPORT INFORMATION
  Report Type: Spontaneous
  Country: US (occurrence: US)
  Receive Date: 20190409
  Receipt Date: 20190605
  Transmission Date: 20190711
  Serious: No
  Sender: FDA-Public Use
  Company Number: US-GLAXOSMITHKLINE-US2019059240

PATIENT
  Sex: Male
  Weight: 111.11 kg

DRUGS (2)
  1. ADVAIR DISKUS [Suspect]
     Active Substance: FLUTICASONE PROPIONATE\SALMETEROL XINAFOATE
     Indication: PRODUCT USED FOR UNKNOWN INDICATION
     Dosage: 1 PUFF(S), BID
     Route: 055
     Dates: start: 2016, end: 2019
  2. ADVAIR DISKUS [Suspect]
     Active Substance: FLUTICASONE PROPIONATE\SALMETEROL XINAFOATE
     Dosage: 1 PUFF(S), BID, 250/50 UG
     Route: 055
     Dates: start: 2016

REACTIONS (6)
  - Condition aggravated [Unknown]
  - Dyspnoea [Unknown]
  - Product complaint [Unknown]
  - Drug ineffective [Unknown]
  - Underdose [Unknown]
  - Inflammation [Unknown]
